FAERS Safety Report 12957939 (Version 1)
Quarter: 2016Q4

REPORT INFORMATION
  Report Type: Spontaneous
  Country: US (occurrence: US)
  Receive Date: 20161118
  Receipt Date: 20161118
  Transmission Date: 20170207
  Serious: No
  Sender: FDA-Public Use
  Company Number: US-AQUA PHARMACEUTICALS-2016AQU000057

PATIENT
  Sex: Male

DRUGS (2)
  1. VERDESO [Suspect]
     Active Substance: DESONIDE
     Dosage: UNK
     Route: 061
     Dates: start: 201602
  2. VERDESO [Suspect]
     Active Substance: DESONIDE
     Indication: RASH
     Dosage: UNK
     Route: 061
     Dates: start: 201601, end: 201601

REACTIONS (5)
  - Rash [Not Recovered/Not Resolved]
  - Product physical consistency issue [Unknown]
  - Application site irritation [Not Recovered/Not Resolved]
  - Drug ineffective [Unknown]
  - Application site erythema [None]

NARRATIVE: CASE EVENT DATE: 201602
